FAERS Safety Report 22090876 (Version 1)
Quarter: 2023Q1

REPORT INFORMATION
  Report Type: Spontaneous
  Country: RU (occurrence: RU)
  Receive Date: 20230314
  Receipt Date: 20230314
  Transmission Date: 20230418
  Serious: Yes (Hospitalization)
  Sender: FDA-Public Use
  Company Number: RU-STRIDES ARCOLAB LIMITED-2023SP003679

PATIENT
  Age: 72 Year
  Sex: Female

DRUGS (10)
  1. ROSUVASTATIN [Interacting]
     Active Substance: ROSUVASTATIN
     Indication: Product used for unknown indication
     Dosage: 40 MILLIGRAM; PER DAY
     Route: 065
     Dates: start: 2021
  2. TICAGRELOR [Interacting]
     Active Substance: TICAGRELOR
     Indication: Product used for unknown indication
     Dosage: 90 MILLIGRAM, BID
     Route: 065
     Dates: start: 2021
  3. AZITHROMYCIN [Concomitant]
     Active Substance: AZITHROMYCIN
     Indication: COVID-19
     Dosage: 250 MILLIGRAM; PER DAY
     Route: 065
     Dates: start: 2021
  4. ACETYLCYSTEINE [Concomitant]
     Active Substance: ACETYLCYSTEINE
     Indication: COVID-19
     Dosage: 200 MILLIGRAM; PER DAY
     Route: 065
     Dates: start: 2021
  5. INGAVIRIN [Concomitant]
     Active Substance: INGAVIRIN
     Indication: COVID-19
     Dosage: UNK
     Route: 065
     Dates: start: 2021
  6. ENALAPRIL [Concomitant]
     Active Substance: ENALAPRIL
     Indication: Product used for unknown indication
     Dosage: 5 MILLIGRAM, BID
     Route: 065
     Dates: start: 2021
  7. SPIRONOLACTONE [Concomitant]
     Active Substance: SPIRONOLACTONE
     Indication: Product used for unknown indication
     Dosage: 25 MILLIGRAM; PER DAY
     Route: 065
     Dates: start: 2021
  8. OMEPRAZOLE [Concomitant]
     Active Substance: OMEPRAZOLE
     Indication: Product used for unknown indication
     Dosage: 20 MILLIGRAM; PER DAY
     Route: 065
     Dates: start: 2021
  9. METOPROLOL SUCCINATE [Concomitant]
     Active Substance: METOPROLOL SUCCINATE
     Indication: Product used for unknown indication
     Dosage: 50 MILLIGRAM; PER DAY
     Route: 065
     Dates: start: 2021
  10. ASPIRIN [Concomitant]
     Active Substance: ASPIRIN
     Indication: Product used for unknown indication
     Dosage: 100 MILLIGRAM; PER DAY
     Route: 065
     Dates: start: 2021

REACTIONS (4)
  - Drug interaction [Unknown]
  - Rhabdomyolysis [Recovered/Resolved]
  - Acute kidney injury [Recovered/Resolved]
  - Drug level increased [Unknown]

NARRATIVE: CASE EVENT DATE: 20210101
